FAERS Safety Report 9531429 (Version 1)
Quarter: 2013Q2

REPORT INFORMATION
  Report Type: Spontaneous
  Country: US (occurrence: None)
  Receive Date: 20130503
  Receipt Date: 20130503
  Transmission Date: 20140414
  Serious: No
  Sender: FDA-Public Use
  Company Number: 1000043499

PATIENT
  Age: 72 Year
  Sex: Male

DRUGS (18)
  1. DALIRESP (ROFLUMILAST) (500 MICROGRAM, TABLETS) [Suspect]
     Indication: CHRONIC OBSTRUCTIVE PULMONARY DISEASE
     Route: 048
     Dates: start: 20130313
  2. TOPROL (METOPROLOL SUCCINATE) (METOPROLOL SUCCINATE) [Concomitant]
  3. CARDIZEM (DILTIAZEM) (DILTIAZEM) [Concomitant]
  4. DIGOXIN (DIGOXIN) (DIGOXIN) [Concomitant]
  5. ASPIRIN (ACETYLSALICYLCI ACID) (ACETYLSALICYLIC ACID)? [Concomitant]
  6. LIPITOR (ATORVASTATIN CALCIUM) (ATORVASTATIN CALCIUM) [Concomitant]
  7. ALLEGRA (FEXOFENADINE HYDROCHLORIDE) (FEXOFENADINE HYDROCHLORIDE)? [Concomitant]
  8. SINGULAIR (MONTELUKAST SODIUM) (MONTELUKAST SODIUM) [Concomitant]
  9. SERAX (OXAZEPAM) (OXAZEPAM) [Concomitant]
  10. RANITIDINE (RANITIDINE) (RANITIDINE) [Concomitant]
  11. COUMADIN (WARFARIN) (WARFARIN) [Concomitant]
  12. HORSE CHESTNUT (AESCULUS HIPPOCASTANUM) (AESCULUS HIPPOCASTANUM)? [Concomitant]
  13. VITAMIN D (VITAMIN D) (VITAMIN D) [Concomitant]
  14. FLOMAX (TAMSULOSIN) (TAMSULOSIN) [Concomitant]
  15. PROSCAR (FINASTERIDE) (FINASTERIDE) [Concomitant]
  16. ADVAIR (SERETIDE) (SERETIDE) [Concomitant]
  17. SPIRIVA (TIOTROPIUM BROMIDE) (TIOTROPIUM BROMIDE) [Concomitant]
  18. ALBUTEROL (ALBUTEROL) (ALBUTEROL) [Concomitant]

REACTIONS (5)
  - Insomnia [None]
  - Dyspnoea [None]
  - Depression [None]
  - Pyrexia [None]
  - Bronchial secretion retention [None]
